FAERS Safety Report 5988559-4 (Version None)
Quarter: 2008Q4

REPORT INFORMATION
  Report Type: 
  Country: None (occurrence: None)
  Receive Date: 20081210
  Receipt Date: 20080618
  Transmission Date: 20090506
  Serious: No
  Sender: FDA-Public Use
  Company Number: US-BAYER-200811678BCC

PATIENT
  Age: 89 Year
  Sex: Male
  Weight: 75 kg

DRUGS (6)
  1. ALEVE (CAPLET) [Suspect]
     Indication: ARTHRITIS
     Dosage: TOTAL DAILY DOSE: 880 MG  UNIT DOSE: 220 MG
     Route: 048
     Dates: start: 20080411
  2. IODINE [Concomitant]
  3. RUMONOXIDE NOS [Concomitant]
  4. AVAPRO [Concomitant]
  5. VITAMIN B3 [Concomitant]
  6. VITAMIN SUPPLEMENT GENERIC [Concomitant]

REACTIONS (2)
  - LOCAL SWELLING [None]
  - NECK PAIN [None]
